FAERS Safety Report 9532617 (Version 1)
Quarter: 2013Q3

REPORT INFORMATION
  Report Type: Spontaneous
  Country: US (occurrence: US)
  Receive Date: 20130918
  Receipt Date: 20130918
  Transmission Date: 20140515
  Serious: Yes (Other)
  Sender: FDA-Public Use
  Company Number: US-NAPPMUNDI-USA-2011-0076424

PATIENT
  Sex: Male

DRUGS (2)
  1. BUTRANS [Suspect]
     Indication: PRODUCT USED FOR UNKNOWN INDICATION
     Dosage: 10 MCG/HR, DAILY
  2. LORTAB /00607101/ [Suspect]
     Indication: PRODUCT USED FOR UNKNOWN INDICATION
     Dosage: 2 TABLET, DAILY

REACTIONS (2)
  - Drug dependence [Unknown]
  - Drug withdrawal syndrome [Unknown]
